FAERS Safety Report 8602221-0 (Version None)
Quarter: 2012Q3

REPORT INFORMATION
  Report Type: 
  Country: None (occurrence: None)
  Receive Date: 20120817
  Receipt Date: 20120813
  Transmission Date: 20120928
  Serious: Yes (Other)
  Sender: FDA-Public Use
  Company Number: US-PFIZER INC-2012030157

PATIENT
  Age: 19 Year
  Sex: Female

DRUGS (4)
  1. NORGESTREL AND ETHINYL ESTRADIOL [Suspect]
     Indication: CONTRACEPTION
     Dosage: 0.3/30 ONCE DAILY
     Route: 048
     Dates: start: 20110124, end: 20120202
  2. RELPAX [Concomitant]
     Dosage: UNK
  3. NYQUIL [Concomitant]
  4. OMEPRAZOLE [Concomitant]

REACTIONS (3)
  - DRUG INEFFECTIVE [None]
  - PRODUCT QUALITY ISSUE [None]
  - UNINTENDED PREGNANCY [None]
